FAERS Safety Report 26057873 (Version 1)
Quarter: 2025Q4

REPORT INFORMATION
  Report Type: Spontaneous
  Country: JP (occurrence: JP)
  Receive Date: 20251118
  Receipt Date: 20251118
  Transmission Date: 20260117
  Serious: Yes (Other)
  Sender: STRIDES
  Company Number: JP-STRIDES ARCOLAB LIMITED-2025SP014348

PATIENT
  Age: 15 Year
  Sex: Male

DRUGS (4)
  1. IMIPRAMINE HYDROCHLORIDE [Suspect]
     Active Substance: IMIPRAMINE HYDROCHLORIDE
     Indication: Schizotypal personality disorder
     Dosage: UNK
     Route: 065
  2. HALOPERIDOL [Suspect]
     Active Substance: HALOPERIDOL
     Indication: Schizotypal personality disorder
     Dosage: 10 MILLIGRAM, QD
     Route: 065
  3. LEVOMEPROMAZINE [Suspect]
     Active Substance: LEVOMEPROMAZINE
     Indication: Schizotypal personality disorder
     Dosage: UNK
     Route: 065
  4. SULPIRIDE [Suspect]
     Active Substance: SULPIRIDE
     Indication: Schizotypal personality disorder
     Dosage: UNK
     Route: 065

REACTIONS (6)
  - Neuroleptic malignant syndrome [Unknown]
  - Waxy flexibility [Unknown]
  - Disease prodromal stage [Unknown]
  - Parkinsonism [Unknown]
  - Insomnia [Unknown]
  - Off label use [Unknown]
